FAERS Safety Report 10082941 (Version 1)
Quarter: 2014Q2

REPORT INFORMATION
  Report Type: Spontaneous
  Country: FR (occurrence: FR)
  Receive Date: 20140417
  Receipt Date: 20140417
  Transmission Date: 20141212
  Serious: Yes (Life-Threatening, Hospitalization)
  Sender: FDA-Public Use
  Company Number: FR-ROCHE-1381066

PATIENT
  Age: 70 Year
  Sex: Female

DRUGS (4)
  1. ROCEPHINE [Suspect]
     Indication: CHRONIC OBSTRUCTIVE PULMONARY DISEASE
     Route: 065
     Dates: start: 20130613, end: 20130613
  2. ROCEPHINE [Suspect]
     Indication: SUPERINFECTION
  3. ASPEGIC 250 [Concomitant]
     Route: 042
  4. PLAVIX [Concomitant]
     Dosage: OVER 48H TO THE BOLUS OF ASPIRIN DL-LYSINE
     Route: 065

REACTIONS (2)
  - Anaphylactic reaction [Recovered/Resolved]
  - Subendocardial ischaemia [Recovered/Resolved]
